FAERS Safety Report 18810117 (Version 1)
Quarter: 2021Q1

REPORT INFORMATION
  Report Type: Report from Study
  Country: AU (occurrence: AU)
  Receive Date: 20210129
  Receipt Date: 20210129
  Transmission Date: 20210419
  Serious: Yes (Hospitalization, Other)
  Sender: FDA-Public Use
  Company Number: AU-JNJFOC-20201229625

PATIENT
  Age: 46 Year
  Sex: Female

DRUGS (4)
  1. VIAGRA [Concomitant]
     Active Substance: SILDENAFIL CITRATE
  2. ADCIRCA [Suspect]
     Active Substance: TADALAFIL
     Indication: PULMONARY ARTERIAL HYPERTENSION
     Route: 048
  3. VOLIBRIS [Concomitant]
     Active Substance: AMBRISENTAN
     Dates: start: 20210120
  4. MACITENTAN [Suspect]
     Active Substance: MACITENTAN
     Indication: PULMONARY ARTERIAL HYPERTENSION
     Route: 048
     Dates: end: 20210119

REACTIONS (4)
  - Constipation [Unknown]
  - Costochondritis [Not Recovered/Not Resolved]
  - Nonspecific reaction [Unknown]
  - Blood prolactin increased [Unknown]

NARRATIVE: CASE EVENT DATE: 202006
